FAERS Safety Report 8663950 (Version 2)
Quarter: 2013Q1

REPORT INFORMATION
  Report Type: Report from Study
  Country: BR (occurrence: BR)
  Receive Date: 20120713
  Receipt Date: 20130205
  Transmission Date: 20140127
  Serious: Yes (Other)
  Sender: FDA-Public Use
  Company Number: BR-JNJFOC-20120701965

PATIENT
  Age: 58 Year
  Sex: Male
  Weight: 97 kg

DRUGS (8)
  1. RIVAROXABAN [Suspect]
     Indication: CEREBROVASCULAR ACCIDENT PROPHYLAXIS
     Route: 048
     Dates: start: 20120620, end: 20120627
  2. RIVAROXABAN [Suspect]
     Indication: ATRIAL FIBRILLATION
     Route: 048
     Dates: start: 20120620, end: 20120627
  3. ENALAPRIL [Concomitant]
     Indication: BLOOD PRESSURE MANAGEMENT
     Route: 048
     Dates: start: 201007
  4. CARVEDILOL [Concomitant]
     Indication: CARDIOMYOPATHY
     Route: 048
     Dates: start: 201007
  5. OMEPRAZOLE [Concomitant]
     Indication: PROPHYLAXIS
     Route: 048
     Dates: start: 201007
  6. ACETYLSALICYLIC ACID [Concomitant]
     Route: 048
     Dates: start: 201007
  7. EZETIMIBE [Concomitant]
     Indication: PROPHYLAXIS
     Route: 048
     Dates: start: 201007, end: 201206
  8. SIMVASTATIN [Concomitant]
     Indication: PROPHYLAXIS
     Route: 048
     Dates: start: 201007

REACTIONS (4)
  - Nephrolithiasis [Recovered/Resolved]
  - Urogenital haemorrhage [Recovered/Resolved]
  - Renal colic [Recovered/Resolved]
  - Anaemia [Unknown]
